APPROVED DRUG PRODUCT: CHLORTHALIDONE
Active Ingredient: CHLORTHALIDONE
Strength: 25MG
Dosage Form/Route: TABLET;ORAL
Application: A089286 | Product #002 | TE Code: AB
Applicant: SUN PHARMACEUTICAL INDUSTRIES INC
Approved: Jul 21, 1986 | RLD: No | RS: No | Type: RX